FAERS Safety Report 6878475-8 (Version None)
Quarter: 2010Q3

REPORT INFORMATION
  Report Type: 
  Country: None (occurrence: None)
  Receive Date: 20100728
  Receipt Date: 20100721
  Transmission Date: 20110219
  Serious: Yes (Other)
  Sender: FDA-Public Use
  Company Number: JP-MERCK-1007USA03141

PATIENT
  Age: 31 Year
  Sex: Female
  Weight: 47 kg

DRUGS (3)
  1. PEPCID [Suspect]
     Route: 048
  2. BUPIVACAINE HYDROCHLORIDE [Concomitant]
     Route: 065
  3. MORPHINE HYDROCHLORIDE [Concomitant]
     Route: 065

REACTIONS (1)
  - BLOOD PRESSURE DECREASED [None]
